FAERS Safety Report 10070358 (Version 2)
Quarter: 2014Q2

REPORT INFORMATION
  Report Type: Spontaneous
  Country: FR (occurrence: FR)
  Receive Date: 20140410
  Receipt Date: 20140418
  Transmission Date: 20141212
  Serious: Yes (Other)
  Sender: FDA-Public Use
  Company Number: FR-PFIZER INC-2014096577

PATIENT
  Age: 67 Year
  Sex: Male

DRUGS (12)
  1. INSPRA [Suspect]
     Dosage: 25 MG, 1X/DAY
     Route: 048
     Dates: start: 20110113, end: 20140216
  2. INEXIUM /01479302/ [Suspect]
     Dosage: 20 MG, 1X/DAY
     Route: 048
     Dates: start: 20110113, end: 20140216
  3. ZYPREXA [Concomitant]
     Dosage: 10 MG, DAILY
     Dates: start: 201001
  4. DEPAKOTE [Concomitant]
     Dosage: 2 DF, DAILY
     Dates: start: 2010
  5. TRIATEC [Concomitant]
     Indication: CARDIAC FAILURE
     Dosage: 5 MG, 1X/DAY
     Route: 048
     Dates: start: 201101
  6. TRIATEC [Concomitant]
     Dosage: 10 MG, DAILY
     Dates: start: 20110113
  7. TAHOR [Concomitant]
     Dosage: 1 DF, DAILY
     Dates: start: 201008
  8. KREDEX [Concomitant]
     Indication: HYPERTENSION
     Dosage: 50 MG, DAILY
     Dates: start: 200710, end: 201403
  9. PLAVIX [Concomitant]
     Dosage: 1 DF, DAILY
     Dates: start: 201008
  10. METFORMIN [Concomitant]
     Dosage: 3 G, DAILY
     Dates: start: 201008
  11. TARDYFERON [Concomitant]
     Dosage: 1 DF, DAILY
  12. UVEDOSE [Concomitant]

REACTIONS (1)
  - Platelet count decreased [Recovered/Resolved]
